FAERS Safety Report 14509691 (Version 2)
Quarter: 2018Q1

REPORT INFORMATION
  Report Type: Spontaneous
  Country: US (occurrence: US)
  Receive Date: 20180209
  Receipt Date: 20180301
  Transmission Date: 20180509
  Serious: No
  Sender: FDA-Public Use
  Company Number: US-GLAXOSMITHKLINE-US2018GSK022112

PATIENT
  Sex: Female
  Weight: 122.45 kg

DRUGS (1)
  1. BENLYSTA [Suspect]
     Active Substance: BELIMUMAB
     Indication: PRODUCT USED FOR UNKNOWN INDICATION
     Dosage: 200 MG, WE
     Route: 058
     Dates: start: 20170908, end: 20180112

REACTIONS (5)
  - Injection site injury [Unknown]
  - Pigmentation disorder [Not Recovered/Not Resolved]
  - Injection site reaction [Unknown]
  - Skin reaction [Unknown]
  - Skin injury [Unknown]
